FAERS Safety Report 8710582 (Version 2)
Quarter: 2012Q4

REPORT INFORMATION
  Report Type: Report from Study
  Country: US (occurrence: US)
  Receive Date: 20120807
  Receipt Date: 20120829
  Transmission Date: 20130627
  Serious: Yes (Other)
  Sender: FDA-Public Use
  Company Number: US-PFIZER INC-2011245599

PATIENT
  Age: 42 Year
  Sex: Female
  Weight: 105 kg

DRUGS (12)
  1. NEURONTIN [Suspect]
     Indication: NEURALGIA
     Dosage: 800 mg
     Route: 048
     Dates: start: 2002
  2. NEURONTIN [Suspect]
     Indication: NEURALGIA
     Dosage: 600 mg
     Route: 048
  3. NEURONTIN [Suspect]
     Dosage: 300 mg
     Route: 048
  4. NEURONTIN [Suspect]
     Dosage: 600 mg
     Route: 048
  5. NEURONTIN [Suspect]
     Dosage: 600 mg, 3x/day
     Route: 048
  6. NEURONTIN [Suspect]
     Dosage: UNK
  7. GABAPENTIN [Suspect]
     Indication: NEURALGIA
     Dosage: UNK, 3x/day
     Route: 048
  8. PROVENTIL HFA [Concomitant]
     Indication: BRONCHITIS CHRONIC
     Dosage: UNK
  9. PROVENTIL HFA [Concomitant]
     Indication: PANIC ATTACK
  10. CELEBREX [Concomitant]
     Indication: OSTEOARTHRITIS
     Dosage: 200 mg, 2x/day
  11. OXYCODONE [Concomitant]
     Dosage: 30 mg, UNK
  12. DIAZEPAM [Concomitant]
     Dosage: UNK

REACTIONS (25)
  - Weight increased [Unknown]
  - Epidural anaesthesia [Recovered/Resolved]
  - Anaesthetic complication [Unknown]
  - Paralysis [Recovered/Resolved]
  - Muscle contracture [Unknown]
  - Toxicity to various agents [Unknown]
  - Liver disorder [Unknown]
  - Back injury [Unknown]
  - Ligament sprain [Unknown]
  - Joint dislocation [Unknown]
  - Abasia [Unknown]
  - Drug hypersensitivity [Unknown]
  - Dyskinesia [Unknown]
  - Fall [Unknown]
  - Fall [Unknown]
  - Neuralgia [Unknown]
  - Musculoskeletal disorder [Unknown]
  - Meniscus injury [Unknown]
  - Somnolence [Unknown]
  - Sleep disorder [Unknown]
  - Exercise tolerance decreased [Unknown]
  - Gait disturbance [Unknown]
  - Paraesthesia [Unknown]
  - Hypoaesthesia [Unknown]
  - Pain [Recovering/Resolving]
